FAERS Safety Report 17651869 (Version 2)
Quarter: 2020Q3

REPORT INFORMATION
  Report Type: Spontaneous
  Country: CN (occurrence: CN)
  Receive Date: 20200409
  Receipt Date: 20200827
  Transmission Date: 20201102
  Serious: Yes (Other)
  Sender: FDA-Public Use
  Company Number: CN-ROCHE-2574710

PATIENT
  Age: 52 Year
  Sex: Female

DRUGS (6)
  1. HERCEPTIN [Suspect]
     Active Substance: TRASTUZUMAB
     Indication: INVASIVE BREAST CARCINOMA
     Dosage: TCBHP REGIMEN 6 CYCLES, INITIAL 8MG/KG, FOLLOW 6 MG/KG
     Route: 065
     Dates: start: 20191129, end: 20200313
  2. HERCEPTIN [Suspect]
     Active Substance: TRASTUZUMAB
     Route: 065
     Dates: start: 2020
  3. CARBOPLATIN. [Concomitant]
     Active Substance: CARBOPLATIN
     Indication: INVASIVE BREAST CARCINOMA
     Dosage: TCBHP REGIMEN 6 CYCLES, DAY1
     Route: 065
     Dates: start: 20191129, end: 20200313
  4. PERJETA [Suspect]
     Active Substance: PERTUZUMAB
     Indication: INVASIVE BREAST CARCINOMA
     Dosage: TCBHP REGIMEN 6 CYCLES, INITIAL 840MG, FOLLOW 420MG
     Route: 065
     Dates: start: 20191129
  5. DOCETAXEL. [Concomitant]
     Active Substance: DOCETAXEL
     Indication: INVASIVE BREAST CARCINOMA
     Dosage: TCBHP REGIMEN 6 CYCLES, DAY1
     Route: 065
     Dates: start: 20191129, end: 20200313
  6. PERJETA [Suspect]
     Active Substance: PERTUZUMAB
     Route: 065
     Dates: start: 2020

REACTIONS (2)
  - Diarrhoea [Unknown]
  - Agranulocytosis [Unknown]
